FAERS Safety Report 7365463-0 (Version None)
Quarter: 2011Q1

REPORT INFORMATION
  Report Type: 
  Country: None (occurrence: None)
  Receive Date: 20110316
  Receipt Date: 20110316
  Transmission Date: 20110831
  Serious: Yes (Other)
  Sender: FDA-Public Use
  Company Number: None

PATIENT
  Age: 86 Year
  Sex: Female
  Weight: 60.782 kg

DRUGS (1)
  1. DIOVAN [Suspect]
     Indication: HYPERTENSION
     Dosage: 320MG. 1 PER DAY
     Dates: start: 20110101, end: 20110123

REACTIONS (3)
  - MUSCLE SPASMS [None]
  - VISION BLURRED [None]
  - BLOOD PRESSURE ABNORMAL [None]
